FAERS Safety Report 16647701 (Version 1)
Quarter: 2019Q3

REPORT INFORMATION
  Report Type: Spontaneous
  Country: US (occurrence: US)
  Receive Date: 20190730
  Receipt Date: 20190730
  Transmission Date: 20191004
  Serious: Yes (Life-Threatening, Other)
  Sender: FDA-Public Use
  Company Number: US-MYLANLABS-2019M1071087

PATIENT
  Age: 56 Year
  Sex: Male

DRUGS (4)
  1. ESMOLOL [Suspect]
     Active Substance: ESMOLOL HYDROCHLORIDE
     Indication: ATRIAL FIBRILLATION
     Dosage: BOLUS DOSE
     Route: 065
  2. EPINEPHRINE. [Suspect]
     Active Substance: EPINEPHRINE
     Indication: EPIDURAL TEST DOSE
     Dosage: 5 MICROG/ML
     Route: 008
  3. EPINEPHRINE. [Suspect]
     Active Substance: EPINEPHRINE
     Dosage: THE SECOND EPIDURAL TEST DOSE INADVERTENTLY CONTAINED 100 MICROG EPINEPHRINE INSTEAD OF THE INTEN...
     Route: 008
  4. LIDOCAINE. [Suspect]
     Active Substance: LIDOCAINE
     Indication: EPIDURAL TEST DOSE
     Route: 008

REACTIONS (8)
  - Supraventricular tachycardia [Recovered/Resolved]
  - Extra dose administered [Recovered/Resolved]
  - Accidental overdose [Recovered/Resolved]
  - Atrial fibrillation [Recovered/Resolved]
  - Drug ineffective [Unknown]
  - Product packaging issue [Recovered/Resolved]
  - Product preparation error [Recovered/Resolved]
  - Heart rate increased [Recovered/Resolved]
